FAERS Safety Report 9856321 (Version 2)
Quarter: 2014Q1

REPORT INFORMATION
  Report Type: Report from Study
  Country: CA (occurrence: CA)
  Receive Date: 20140130
  Receipt Date: 20140205
  Transmission Date: 20141002
  Serious: Yes (Death)
  Sender: FDA-Public Use
  Company Number: PHHY2014CA010938

PATIENT
  Sex: Female

DRUGS (3)
  1. ACLASTA [Suspect]
     Indication: OSTEOPOROSIS
     Dosage: UNK UKN, UNK
     Route: 042
     Dates: start: 20101004
  2. ACLASTA [Suspect]
     Dosage: UNK UKN, UNK
     Route: 042
     Dates: start: 20111007
  3. ACLASTA [Suspect]
     Dosage: UNK UKN, UNK
     Route: 042
     Dates: start: 20121012

REACTIONS (2)
  - Breast cancer [Fatal]
  - Colon cancer [Fatal]
